FAERS Safety Report 8552876-4 (Version None)
Quarter: 2012Q3

REPORT INFORMATION
  Report Type: 
  Country: None (occurrence: None)
  Receive Date: 20120731
  Receipt Date: 20120727
  Transmission Date: 20120928
  Serious: Yes (Other)
  Sender: FDA-Public Use
  Company Number: PHHY2012DE046414

PATIENT
  Sex: Female
  Weight: 64 kg

DRUGS (2)
  1. EXFORGE HCT [Suspect]
     Dosage: 0.5 DF, QD
  2. EXFORGE HCT [Suspect]
     Indication: HYPERTENSION
     Dosage: 1 DF(160 MG VALS, 10 MG AMLO AND 25 MG HCTZ), QD
     Dates: start: 20110502

REACTIONS (6)
  - WRONG TECHNIQUE IN DRUG USAGE PROCESS [None]
  - BLOOD PRESSURE DECREASED [None]
  - RECURRENT CANCER [None]
  - DIZZINESS [None]
  - BREAST CANCER RECURRENT [None]
  - HEPATIC NEOPLASM MALIGNANT RECURRENT [None]
